FAERS Safety Report 7759468-5 (Version None)
Quarter: 2011Q3

REPORT INFORMATION
  Report Type: 
  Country: None (occurrence: None)
  Receive Date: 20110919
  Receipt Date: 20110919
  Transmission Date: 20111222
  Serious: Yes (Hospitalization, Other)
  Sender: FDA-Public Use
  Company Number: None

PATIENT
  Age: 21 Year
  Sex: Male
  Weight: 99 kg

DRUGS (1)
  1. GAMUNEX [Suspect]
     Indication: THROMBOCYTOPENIA
     Dosage: 100 GRAMS
     Route: 042
     Dates: start: 20110713, end: 20110714

REACTIONS (4)
  - PLATELET COUNT DECREASED [None]
  - BLOOD BILIRUBIN INCREASED [None]
  - HAPTOGLOBIN INCREASED [None]
  - HAEMOGLOBIN DECREASED [None]
